FAERS Safety Report 11911486 (Version 2)
Quarter: 2016Q1

REPORT INFORMATION
  Report Type: Spontaneous
  Country: US (occurrence: US)
  Receive Date: 20160112
  Receipt Date: 20160112
  Transmission Date: 20160526
  Serious: Yes (Other)
  Sender: FDA-Public Use
  Company Number: US-SA-2015SA211472

PATIENT
  Age: 74 Year
  Sex: Female

DRUGS (2)
  1. LANTUS SOLOSTAR [Suspect]
     Active Substance: INSULIN GLARGINE
     Indication: TYPE 2 DIABETES MELLITUS
     Dosage: BETWEEN 6 AND 14 UNITS DEPENDING ON WHAT HER BS READING IS
     Route: 065
     Dates: start: 20151209
  2. SOLOSTAR [Suspect]
     Active Substance: DEVICE
     Indication: TYPE 2 DIABETES MELLITUS
     Dates: start: 20151209

REACTIONS (3)
  - Eye operation [Unknown]
  - Incorrect drug administration duration [Unknown]
  - Glycosylated haemoglobin increased [Unknown]
